FAERS Safety Report 24342904 (Version 1)
Quarter: 2024Q3

REPORT INFORMATION
  Report Type: Spontaneous
  Country: US (occurrence: US)
  Receive Date: 20240920
  Receipt Date: 20240920
  Transmission Date: 20241016
  Serious: Yes (Other)
  Sender: ACCORD
  Company Number: US-Accord-446721

PATIENT
  Age: 52 Year
  Sex: Female

DRUGS (13)
  1. CARBOPLATIN [Suspect]
     Active Substance: CARBOPLATIN
     Indication: Lung adenocarcinoma stage IV
     Dosage: ONE CYCLE (CYCLE - TREATMENT EVERY 3 WEEKS)
     Dates: start: 202005, end: 202006
  2. PEMETREXED [Suspect]
     Active Substance: PEMETREXED
     Indication: Metastases to bone
     Dosage: ONE CYCLE (CYCLE - TREATMENT EVERY 3 WEEKS)
     Dates: start: 202005, end: 202007
  3. PEMBROLIZUMAB [Suspect]
     Active Substance: PEMBROLIZUMAB
     Indication: Metastases to liver
     Dosage: ADDED TO THE TREATMENT REGIMEN AT CYCLE 2
     Dates: start: 202005
  4. SILDENAFIL [Concomitant]
     Active Substance: SILDENAFIL
     Indication: Pulmonary arterial hypertension
     Dates: start: 201412
  5. MACITENTAN [Concomitant]
     Active Substance: MACITENTAN
     Indication: Pulmonary arterial hypertension
     Dates: start: 201412
  6. RIOCIGUAT [Concomitant]
     Active Substance: RIOCIGUAT
     Indication: Lung adenocarcinoma stage IV
  7. SELEXIPAG [Concomitant]
     Active Substance: SELEXIPAG
     Indication: Pulmonary arterial hypertension
  8. PEMBROLIZUMAB [Suspect]
     Active Substance: PEMBROLIZUMAB
     Indication: Lung adenocarcinoma stage IV
     Dosage: ADDED TO THE TREATMENT REGIMEN AT CYCLE 2
     Dates: start: 202005
  9. PEMBROLIZUMAB [Suspect]
     Active Substance: PEMBROLIZUMAB
     Indication: Metastases to bone
     Dosage: ADDED TO THE TREATMENT REGIMEN AT CYCLE 2
     Dates: start: 202005
  10. CARBOPLATIN [Suspect]
     Active Substance: CARBOPLATIN
     Indication: Metastases to bone
     Dosage: ONE CYCLE (CYCLE - TREATMENT EVERY 3 WEEKS)
     Dates: start: 202005, end: 202006
  11. CARBOPLATIN [Suspect]
     Active Substance: CARBOPLATIN
     Indication: Metastases to liver
     Dosage: ONE CYCLE (CYCLE - TREATMENT EVERY 3 WEEKS)
     Dates: start: 202005, end: 202006
  12. PEMETREXED [Suspect]
     Active Substance: PEMETREXED
     Indication: Lung adenocarcinoma stage IV
     Dosage: ONE CYCLE (CYCLE - TREATMENT EVERY 3 WEEKS)
     Dates: start: 202005, end: 202007
  13. PEMETREXED [Suspect]
     Active Substance: PEMETREXED
     Indication: Metastases to liver
     Dosage: ONE CYCLE (CYCLE - TREATMENT EVERY 3 WEEKS)
     Dates: start: 202005, end: 202007

REACTIONS (6)
  - Cancer fatigue [Unknown]
  - Dyspnoea [Unknown]
  - Pulmonary arterial hypertension [Unknown]
  - Pulmonary veno-occlusive disease [Unknown]
  - Pancytopenia [Unknown]
  - Condition aggravated [Unknown]
